FAERS Safety Report 5834256-5 (Version None)
Quarter: 2008Q3

REPORT INFORMATION
  Report Type: 
  Country: None (occurrence: None)
  Receive Date: 20080805
  Receipt Date: 20080728
  Transmission Date: 20090109
  Serious: Yes (Other)
  Sender: FDA-Public Use
  Company Number: PHBS2006JP18109

PATIENT
  Sex: Female

DRUGS (9)
  1. AREDIA [Suspect]
     Indication: METASTASES TO BONE
     Dosage: 90 MG
     Route: 042
     Dates: start: 19991106, end: 20060701
  2. ZOMETA [Suspect]
     Indication: METASTASES TO BONE
     Dosage: 4 MG
     Route: 042
     Dates: start: 20060814, end: 20061201
  3. CHEMOTHERAPEUTICS,OTHER [Suspect]
     Route: 065
  4. TAXOTERE [Concomitant]
     Indication: BREAST CANCER
     Route: 042
  5. HYSRON [Concomitant]
     Indication: BREAST CANCER
     Route: 048
  6. ARIMIDEX [Concomitant]
     Indication: BREAST CANCER
     Route: 048
  7. BLOPRESS [Concomitant]
     Indication: HYPERTENSION
     Route: 048
  8. AMLODIPINE BESYLATE [Concomitant]
     Indication: HYPERTENSION
     Route: 048
  9. AMARYL [Concomitant]
     Indication: DIABETES MELLITUS

REACTIONS (10)
  - ABSCESS [None]
  - BONE DISORDER [None]
  - IMPAIRED HEALING [None]
  - OSTEOMYELITIS [None]
  - SEQUESTRECTOMY [None]
  - SWELLING [None]
  - TOOTH EROSION [None]
  - TOOTH EXTRACTION [None]
  - TOOTH RESORPTION [None]
  - WOUND DRAINAGE [None]
